FAERS Safety Report 12075517 (Version 1)
Quarter: 2016Q1

REPORT INFORMATION
  Report Type: Spontaneous
  Country: US (occurrence: US)
  Receive Date: 20160213
  Receipt Date: 20160213
  Transmission Date: 20160526
  Serious: Yes (Life-Threatening, Hospitalization, Other)
  Sender: FDA-Public Use
  Company Number: US-BRISTOL-MYERS SQUIBB COMPANY-BMS-2016-010102

PATIENT
  Age: 77 Year
  Sex: Female

DRUGS (2)
  1. OPDIVO [Suspect]
     Active Substance: NIVOLUMAB
     Indication: PRODUCT USED FOR UNKNOWN INDICATION
     Dosage: UNK
     Route: 042
  2. AMBIEN [Concomitant]
     Active Substance: ZOLPIDEM TARTRATE
     Indication: PRODUCT USED FOR UNKNOWN INDICATION
     Route: 065

REACTIONS (14)
  - Aldolase abnormal [Unknown]
  - Posture abnormal [Unknown]
  - Carbon dioxide abnormal [Unknown]
  - Muscle atrophy [Unknown]
  - Respiratory muscle weakness [Unknown]
  - Blood creatine phosphokinase increased [Unknown]
  - Eyelid ptosis [Unknown]
  - Troponin increased [Unknown]
  - Myocarditis [Unknown]
  - Malaise [Unknown]
  - Myalgia [Unknown]
  - Muscle disorder [Unknown]
  - Dyspnoea [Unknown]
  - Fatigue [Unknown]

NARRATIVE: CASE EVENT DATE: 201601
